FAERS Safety Report 7315252-8 (Version None)
Quarter: 2011Q1

REPORT INFORMATION
  Report Type: 
  Country: None (occurrence: None)
  Receive Date: 20110225
  Receipt Date: 20110202
  Transmission Date: 20110831
  Serious: Yes (Other)
  Sender: FDA-Public Use
  Company Number: US-ROCHE-759005

PATIENT
  Age: 60 Year
  Sex: Female

DRUGS (3)
  1. HERCEPTIN [Suspect]
     Indication: BREAST CANCER
     Route: 065
  2. CARBOPLATIN [Suspect]
     Indication: BREAST CANCER
     Route: 065
  3. DOCETAXEL [Suspect]
     Indication: BREAST CANCER
     Route: 065

REACTIONS (1)
  - PANCREATITIS ACUTE [None]
